FAERS Safety Report 8764559 (Version 1)
Quarter: 2012Q4

REPORT INFORMATION
  Report Type: 
  Country: US (occurrence: US)
  Receive Date: 20120831
  Receipt Date: 20120831
  Transmission Date: 20130627
  Serious: No
  Sender: FDA-Public Use
  Company Number: US-ASTRAZENECA-2011SE66878

PATIENT
  Age: 72 Year
  Sex: Female

DRUGS (4)
  1. SYMBICORT PMDI [Suspect]
     Indication: ASTHMA
     Dosage: 160/4.5 mcg, 2 puffs, BID
     Route: 055
  2. AMBIEN [Concomitant]
  3. BLOOD PRESSURE MEDICATIONS [Concomitant]
  4. MEDICATIONS FOR DIABETES [Concomitant]

REACTIONS (7)
  - Lung disorder [Unknown]
  - Pneumonia [Unknown]
  - Stomatitis [Not Recovered/Not Resolved]
  - Gingival pain [Not Recovered/Not Resolved]
  - Aphthous stomatitis [Unknown]
  - Stomatitis [Unknown]
  - Wrong technique in drug usage process [Unknown]
